FAERS Safety Report 22541702 (Version 1)
Quarter: 2023Q2

REPORT INFORMATION
  Report Type: Spontaneous
  Country: CA (occurrence: None)
  Receive Date: 20230609
  Receipt Date: 20230609
  Transmission Date: 20230722
  Serious: Yes (Life-Threatening, Hospitalization, Other)
  Sender: FDA-Public Use
  Company Number: 2023A132712

PATIENT
  Age: 53 Year
  Sex: Female

DRUGS (6)
  1. QUETIAPINE [Suspect]
     Active Substance: QUETIAPINE
     Indication: Product used for unknown indication
     Dosage: 50.0MG UNKNOWN
     Route: 048
  2. ALPRAZOLAM [Suspect]
     Active Substance: ALPRAZOLAM
     Indication: Product used for unknown indication
     Route: 048
  3. CLONAZEPAM [Suspect]
     Active Substance: CLONAZEPAM
     Indication: Product used for unknown indication
     Dosage: 1.0MG UNKNOWN
     Route: 048
  4. LORAZEPAM [Suspect]
     Active Substance: LORAZEPAM
     Indication: Product used for unknown indication
     Dosage: 0.5MG UNKNOWN
     Route: 048
  5. VICKS NYQUIL COLD AND FLU NIGHTTIME RELIEF [Suspect]
     Active Substance: ACETAMINOPHEN\DEXTROMETHORPHAN HYDROBROMIDE\DOXYLAMINE SUCCINATE
     Indication: Product used for unknown indication
     Dosage: 1.0DF UNKNOWN
     Route: 048
  6. ZOPICLONE [Suspect]
     Active Substance: ZOPICLONE
     Indication: Product used for unknown indication
     Dosage: 7.5MG UNKNOWN
     Route: 048

REACTIONS (17)
  - Analgesic drug level increased [Unknown]
  - Anion gap increased [Unknown]
  - Blood creatinine increased [Unknown]
  - Blood lactic acid increased [Unknown]
  - Blood osmolarity increased [Unknown]
  - Blood potassium increased [Unknown]
  - Blood urea increased [Unknown]
  - Lactic acidosis [Unknown]
  - Loss of consciousness [Unknown]
  - Osmolar gap increased [Unknown]
  - PO2 increased [Unknown]
  - Respiratory rate decreased [Unknown]
  - Toxicity to various agents [Unknown]
  - Blood glucose increased [Unknown]
  - Blood pressure decreased [Unknown]
  - Sinus tachycardia [Unknown]
  - Intentional overdose [Unknown]
